FAERS Safety Report 9204651 (Version 1)
Quarter: 2013Q1

REPORT INFORMATION
  Report Type: Spontaneous
  Country: US (occurrence: None)
  Receive Date: 20120709
  Receipt Date: 20120709
  Transmission Date: 20140127
  Serious: Yes (Other)
  Sender: FDA-Public Use
  Company Number: PHEH2011US010214

PATIENT
  Age: 66 Year
  Sex: Female

DRUGS (1)
  1. GLEEVEC (IMATINIB) UNKNOWN [Suspect]
     Indication: CHRONIC MYELOID LEUKAEMIA
     Route: 048
     Dates: start: 20080125

REACTIONS (7)
  - Neuropathy peripheral [None]
  - Micturition disorder [None]
  - Back pain [None]
  - Palmar erythema [None]
  - Diarrhoea [None]
  - Nausea [None]
  - Vomiting [None]
